FAERS Safety Report 8583926-7 (Version None)
Quarter: 2012Q3

REPORT INFORMATION
  Report Type: 
  Country: None (occurrence: None)
  Receive Date: 20120810
  Receipt Date: 20120804
  Transmission Date: 20120928
  Serious: Yes (Hospitalization)
  Sender: FDA-Public Use
  Company Number: JP-MERCK-1207JPN011120

PATIENT

DRUGS (12)
  1. PEG-INTRON [Suspect]
     Indication: HEPATITIS C
     Dosage: 80 MICROGRAM, QW
     Route: 058
     Dates: start: 20120110, end: 20120117
  2. PEG-INTRON [Suspect]
     Dosage: 80 UNK, UNK
     Route: 048
     Dates: start: 20120510, end: 20120719
  3. PEG-INTRON [Suspect]
     Dosage: 80 MICROGRAM, QW
     Route: 048
     Dates: start: 20120126, end: 20120502
  4. BLINDED POST TRIAL THERAPY [Suspect]
     Indication: HEPATITIS C
     Dosage: 2 DF, QD
     Route: 048
     Dates: start: 20120110
  5. RIBAVIRIN [Suspect]
     Indication: HEPATITIS C
     Dosage: 2 DF, QD
     Route: 048
     Dates: start: 20120110
  6. LOXOPROFEN [Concomitant]
     Indication: PYREXIA
  7. PEGINTERFERON ALFA-2B [Suspect]
     Indication: HEPATITIS C
     Dosage: 2 DF, QD
     Route: 048
     Dates: start: 20120110
  8. REBETOL [Suspect]
     Indication: HEPATITIS C
     Dosage: 600 MG, QD
     Route: 048
     Dates: start: 20120110, end: 20120719
  9. BLINDED PRE TRIAL THERAPY [Suspect]
     Indication: HEPATITIS C
     Dosage: 2 DF, QD
     Route: 048
     Dates: start: 20120110
  10. BLINDED VANIPREVIR [Suspect]
     Indication: HEPATITIS C
     Dosage: 2 DF, QD
     Route: 048
     Dates: start: 20120110
  11. PLACEBO [Suspect]
     Indication: HEPATITIS C
     Dosage: 2 DF, QD
     Route: 048
     Dates: start: 20120110
  12. LOXOPROFEN [Concomitant]
     Indication: STOMATITIS
     Dosage: UNK
     Dates: start: 20120110

REACTIONS (1)
  - SUDDEN HEARING LOSS [None]
